FAERS Safety Report 4952161-3 (Version None)
Quarter: 2006Q1

REPORT INFORMATION
  Report Type: 
  Country: None (occurrence: None)
  Receive Date: 20060317
  Receipt Date: 20060302
  Transmission Date: 20060701
  Serious: Yes (Other)
  Sender: FDA-Public Use
  Company Number: 2006JP000642

PATIENT
  Age: 1 Year
  Sex: Male

DRUGS (3)
  1. PROGRAF [Suspect]
     Indication: LIVER TRANSPLANT
  2. PREDNISOLONE [Suspect]
     Indication: LIVER TRANSPLANT
  3. AZATHIOPRINE [Suspect]

REACTIONS (11)
  - AGITATION [None]
  - BLOOD POTASSIUM INCREASED [None]
  - CARDIAC ARREST [None]
  - CARDIAC MURMUR [None]
  - COMPLICATIONS OF TRANSPLANTED LIVER [None]
  - CYANOSIS [None]
  - DEPRESSED LEVEL OF CONSCIOUSNESS [None]
  - DRUG TOXICITY [None]
  - HYPOGLYCAEMIA [None]
  - PULMONARY HYPERTENSION [None]
  - RENAL TUBULAR ACIDOSIS [None]
